FAERS Safety Report 15488267 (Version 1)
Quarter: 2018Q4

REPORT INFORMATION
  Report Type: Spontaneous
  Country: US (occurrence: US)
  Receive Date: 20181011
  Receipt Date: 20181011
  Transmission Date: 20190205
  Serious: No
  Sender: FDA-Public Use
  Company Number: US-RISING PHARMACEUTICALS, INC.-2017RIS00224

PATIENT
  Age: 86 Year
  Sex: Female

DRUGS (3)
  1. PROCTOZONE-HC [Suspect]
     Active Substance: HYDROCORTISONE
     Dosage: UNK, AS NEEDED
     Dates: start: 201607
  2. PROCTOZONE-HC [Suspect]
     Active Substance: HYDROCORTISONE
     Dosage: UNK, 2X/DAY
     Dates: end: 20170823
  3. PROCTOZONE-HC [Suspect]
     Active Substance: HYDROCORTISONE
     Indication: HAEMORRHOIDS
     Dosage: UNK, 1X/DAY
     Dates: start: 20170823

REACTIONS (1)
  - Brain natriuretic peptide decreased [Not Recovered/Not Resolved]

NARRATIVE: CASE EVENT DATE: 201609
